FAERS Safety Report 7387046-9 (Version None)
Quarter: 2011Q1

REPORT INFORMATION
  Report Type: 
  Country: None (occurrence: None)
  Receive Date: 20110331
  Receipt Date: 20110321
  Transmission Date: 20110831
  Serious: Yes (Hospitalization, Other)
  Sender: FDA-Public Use
  Company Number: CZ-NOVOPROD-322641

PATIENT
  Sex: Female
  Weight: 68 kg

DRUGS (24)
  1. LEVEMIR [Suspect]
     Dosage: INCREASED DOSE
     Route: 058
     Dates: start: 20090707
  2. LEVEMIR [Suspect]
     Dosage: 68 IU, QD
     Route: 058
     Dates: start: 20090805, end: 20090805
  3. LISPRO INSULIN [Suspect]
     Indication: TYPE 1 DIABETES MELLITUS
     Dosage: 15 IU, TID
     Route: 058
     Dates: start: 20050101
  4. LISPRO INSULIN [Suspect]
     Dosage: INCREASED DOSE
     Route: 058
     Dates: start: 20090427
  5. LISPRO INSULIN [Suspect]
     Dosage: INCREASED DOSE
     Route: 058
     Dates: start: 20090602
  6. LISPRO INSULIN [Suspect]
     Dosage: INCREASED DOSE
     Route: 058
     Dates: start: 20090707
  7. LISPRO INSULIN [Suspect]
     Dosage: UNK
     Route: 058
  8. LEVEMIR [Suspect]
     Dosage: INCREASED DOSE
     Route: 058
     Dates: start: 20090406
  9. LISPRO INSULIN [Suspect]
     Dosage: 48 IU, QD
     Route: 058
     Dates: start: 20090202
  10. LISPRO INSULIN [Suspect]
     Dosage: INCREASED DOSE
     Route: 058
     Dates: start: 20090217
  11. LISPRO INSULIN [Suspect]
     Dosage: INCREASED DOSE
     Route: 058
     Dates: start: 20090331
  12. LISPRO INSULIN [Suspect]
     Dosage: 100 IU, QD (10+30+30+30)
     Dates: start: 20090720
  13. IRON COMPOUND [Concomitant]
     Indication: ANAEMIA OF PREGNANCY
  14. LEVEMIR [Suspect]
     Dosage: INCREASED DOSE
     Route: 058
     Dates: start: 20090331
  15. LEVEMIR [Suspect]
     Dosage: INCREASED DOSE
     Route: 058
     Dates: start: 20090427
  16. LEVEMIR [Suspect]
     Dosage: INCREASED DOSE
     Route: 058
     Dates: start: 20090602
  17. LEVEMIR [Suspect]
     Dosage: UNK
     Route: 058
  18. LEVEMIR [Suspect]
     Indication: TYPE 1 DIABETES MELLITUS
     Dosage: UNK IU, QD
     Route: 058
     Dates: start: 20070101
  19. LEVEMIR [Suspect]
     Dosage: 74 IU, QD
     Route: 058
     Dates: start: 20090720
  20. LEVEMIR [Suspect]
     Dosage: 45 IU, QD
     Route: 058
     Dates: start: 20090202
  21. LISPRO INSULIN [Suspect]
     Dosage: INCREASED DOSE
     Route: 058
     Dates: start: 20090406
  22. LISPRO INSULIN [Suspect]
     Dosage: 92 IU, QD
     Route: 058
     Dates: start: 20090805, end: 20090805
  23. LEVEMIR [Suspect]
     Dosage: INCREASED DOSE
     Route: 058
     Dates: start: 20090217
  24. LEVEMIR [Suspect]
     Dosage: 76 IU, QD (36+0+0+40) BEFORE DELIVERY
     Route: 058

REACTIONS (8)
  - CONDITION AGGRAVATED [None]
  - CAESAREAN SECTION [None]
  - DRUG EXPOSURE DURING PREGNANCY [None]
  - GLYCOSYLATED HAEMOGLOBIN INCREASED [None]
  - POLYHYDRAMNIOS [None]
  - PROTEINURIA [None]
  - GESTATIONAL HYPERTENSION [None]
  - MICROALBUMINURIA [None]
